FAERS Safety Report 17678893 (Version 2)
Quarter: 2020Q2

REPORT INFORMATION
  Report Type: Spontaneous
  Country: US (occurrence: US)
  Receive Date: 20200417
  Receipt Date: 20200614
  Transmission Date: 20200714
  Serious: No
  Sender: FDA-Public Use
  Company Number: US-ASTRAZENECA-2020SE51898

PATIENT
  Sex: Male

DRUGS (1)
  1. BYDUREON BCISE [Suspect]
     Active Substance: EXENATIDE
     Route: 065

REACTIONS (5)
  - Device issue [Unknown]
  - Intentional device misuse [Not Recovered/Not Resolved]
  - Injection site extravasation [Unknown]
  - Product dose omission [Unknown]
  - Injection site mass [Unknown]
